FAERS Safety Report 8556213-0 (Version None)
Quarter: 2012Q3

REPORT INFORMATION
  Report Type: 
  Country: None (occurrence: None)
  Receive Date: 20120801
  Receipt Date: 20120724
  Transmission Date: 20120928
  Serious: Yes (Other)
  Sender: FDA-Public Use
  Company Number: JP-VERTEX PHARMACEUTICALS INC.-AE-2012-006071

PATIENT
  Age: 64 Year
  Sex: Female

DRUGS (14)
  1. RIBAVIRIN [Concomitant]
     Indication: HEPATITIS C
     Route: 048
     Dates: start: 20120130, end: 20120219
  2. LOCHOLEST [Concomitant]
     Route: 048
  3. TELAVIC (TELAPREVIR) [Suspect]
     Indication: HEPATITIS C
     Route: 048
     Dates: start: 20120130, end: 20120423
  4. RIBAVIRIN [Concomitant]
     Route: 048
     Dates: start: 20120604
  5. PEGINTERFERON ALFA-2B [Concomitant]
     Route: 058
     Dates: start: 20120220
  6. LOCHOLEST [Concomitant]
     Route: 048
  7. ZETIA [Concomitant]
     Route: 048
     Dates: start: 20120213
  8. EVISTA [Concomitant]
     Route: 048
     Dates: start: 20120213
  9. LOCHOLEST [Concomitant]
     Route: 048
     Dates: start: 20120316
  10. OLMESARTAN MEDOXOMIL [Concomitant]
     Route: 048
  11. RIBAVIRIN [Concomitant]
     Route: 048
     Dates: start: 20120220, end: 20120603
  12. PEGINTERFERON ALFA-2B [Concomitant]
     Indication: HEPATITIS C
     Route: 058
     Dates: start: 20120130, end: 20120219
  13. EVAMYL [Concomitant]
     Route: 048
     Dates: end: 20120204
  14. TSUMURA JUZENTAIHOTO EXTRACT GRANULES FOR ETHICAL USE [Concomitant]
     Route: 048
     Dates: start: 20120305

REACTIONS (2)
  - PANCYTOPENIA [None]
  - ANAEMIA [None]
